FAERS Safety Report 11814235 (Version 1)
Quarter: 2015Q4

REPORT INFORMATION
  Report Type: Spontaneous
  Country: TW (occurrence: TW)
  Receive Date: 20151209
  Receipt Date: 20151209
  Transmission Date: 20160305
  Serious: Yes (Hospitalization)
  Sender: FDA-Public Use
  Company Number: TW-APOTEX-2015AP015057

PATIENT
  Age: 60 Year
  Sex: Female

DRUGS (6)
  1. QUETIAPINE [Suspect]
     Active Substance: QUETIAPINE
     Dosage: 150 MG/DAY DECREASED TO 100 MG/DAY
     Route: 065
  2. CARBAMAZEPINE. [Suspect]
     Active Substance: CARBAMAZEPINE
     Indication: SCHIZOPHRENIA
     Dosage: 600 MG/DAY, DISCONTINUED AND AGAIN RECEIVED 400 MG/DAY
     Route: 065
     Dates: start: 201411
  3. QUETIAPINE [Suspect]
     Active Substance: QUETIAPINE
     Dosage: 100MG/DAY
     Route: 065
  4. QUETIAPINE [Suspect]
     Active Substance: QUETIAPINE
     Dosage: 200 MG/DAY DECREASED TO 150MG/DAY
     Route: 065
  5. CARBAMAZEPINE. [Suspect]
     Active Substance: CARBAMAZEPINE
     Dosage: 400 MG/DAY
     Route: 065
  6. QUETIAPINE [Suspect]
     Active Substance: QUETIAPINE
     Indication: SCHIZOPHRENIA
     Dosage: 925 MG/DAY TAPERED DOWN TO 200 MG/DAY
     Route: 065
     Dates: start: 201411

REACTIONS (3)
  - Urinary tract infection [Unknown]
  - Neuroleptic malignant syndrome [Recovered/Resolved]
  - Pneumonia aspiration [Unknown]
